FAERS Safety Report 13025518 (Version 3)
Quarter: 2016Q4

REPORT INFORMATION
  Report Type: Spontaneous
  Country: IT (occurrence: IT)
  Receive Date: 20161214
  Receipt Date: 20161227
  Transmission Date: 20170207
  Serious: Yes (Hospitalization)
  Sender: FDA-Public Use
  Company Number: IT-TEVA-718181ACC

PATIENT
  Age: 50 Year
  Sex: Female

DRUGS (3)
  1. SPIRONOLACTONE. [Concomitant]
     Active Substance: SPIRONOLACTONE
     Indication: HYPERTENSION
     Dosage: 25 MILLIGRAM DAILY;
  2. ATENOLOLO [Suspect]
     Active Substance: ATENOLOL
     Indication: HYPERTENSION
     Dosage: 50 MILLIGRAM DAILY;
     Route: 048
  3. SPIRONOLATTONE [Suspect]
     Active Substance: SPIRONOLACTONE

REACTIONS (6)
  - Drug administration error [Recovered/Resolved]
  - Blood pressure increased [Unknown]
  - Vomiting [Unknown]
  - Dyspnoea [Unknown]
  - Hypertensive crisis [Recovered/Resolved]
  - Hyperhidrosis [Unknown]
